FAERS Safety Report 9855738 (Version 3)
Quarter: 2014Q2

REPORT INFORMATION
  Report Type: Report from Study
  Country: US (occurrence: US)
  Receive Date: 20140130
  Receipt Date: 20140403
  Transmission Date: 20141212
  Serious: Yes (Hospitalization, Other)
  Sender: FDA-Public Use
  Company Number: PHEH2014US001920

PATIENT
  Age: 75 Year
  Sex: Male
  Weight: 90.5 kg

DRUGS (1)
  1. EXJADE [Suspect]
     Indication: IRON OVERLOAD
     Dosage: 3 DF, QD
     Route: 048

REACTIONS (5)
  - Cardiac failure congestive [Unknown]
  - Arrhythmia [Unknown]
  - Supraventricular tachycardia [Unknown]
  - Cardiac stress test abnormal [Unknown]
  - Tachycardia [Unknown]
